FAERS Safety Report 18342770 (Version 1)
Quarter: 2020Q4

REPORT INFORMATION
  Report Type: Spontaneous
  Country: US (occurrence: US)
  Receive Date: 20201002
  Receipt Date: 20201002
  Transmission Date: 20210113
  Serious: Yes (Life-Threatening, Hospitalization)
  Sender: FDA-Public Use
  Company Number: None

PATIENT
  Age: 65 Year
  Sex: Male
  Weight: 61.69 kg

DRUGS (1)
  1. LISINOPRIL (LISINOPRIL 10MG TAB) [Suspect]
     Active Substance: LISINOPRIL
     Indication: HYPERTENSION
     Route: 048
     Dates: start: 20200817, end: 20200818

REACTIONS (5)
  - Lip swelling [None]
  - Epiglottic oedema [None]
  - Dyspnoea [None]
  - Angioedema [None]
  - Oropharyngeal oedema [None]

NARRATIVE: CASE EVENT DATE: 20200818
